FAERS Safety Report 23497163 (Version 1)
Quarter: 2024Q1

REPORT INFORMATION
  Report Type: Spontaneous
  Country: US (occurrence: None)
  Receive Date: 20240207
  Receipt Date: 20240207
  Transmission Date: 20240410
  Serious: Yes (Other)
  Sender: FDA-Public Use
  Company Number: None

PATIENT
  Age: 39 Year
  Sex: Female
  Weight: 63.45 kg

DRUGS (1)
  1. MIRENA [Suspect]
     Active Substance: LEVONORGESTREL
     Indication: Contraception
     Dates: start: 20230501

REACTIONS (5)
  - Mood swings [None]
  - Libido decreased [None]
  - Complication associated with device [None]
  - Scab [None]
  - Skin exfoliation [None]

NARRATIVE: CASE EVENT DATE: 20230601
